FAERS Safety Report 25218228 (Version 1)
Quarter: 2025Q2

REPORT INFORMATION
  Report Type: Spontaneous
  Country: CN (occurrence: CN)
  Receive Date: 20250421
  Receipt Date: 20250421
  Transmission Date: 20250716
  Serious: Yes (Other)
  Sender: Haleon PLC
  Company Number: CN-HALEON-2238293

PATIENT
  Age: 46 Year
  Sex: Female
  Weight: 55 kg

DRUGS (2)
  1. FLUTICASONE PROPIONATE [Suspect]
     Active Substance: FLUTICASONE PROPIONATE
     Indication: Deafness unilateral
     Dates: start: 20250409, end: 20250409
  2. FLUTICASONE PROPIONATE [Suspect]
     Active Substance: FLUTICASONE PROPIONATE
     Indication: Deafness neurosensory

REACTIONS (6)
  - Pharyngeal haemorrhage [Recovered/Resolved]
  - Nasal discomfort [Recovered/Resolved]
  - Nasal dryness [Recovered/Resolved]
  - Oropharyngeal discomfort [Recovered/Resolved]
  - Epistaxis [Recovered/Resolved]
  - Dry throat [Recovered/Resolved]

NARRATIVE: CASE EVENT DATE: 20250409
